FAERS Safety Report 15106242 (Version 2)
Quarter: 2018Q3

REPORT INFORMATION
  Report Type: Spontaneous
  Country: CN (occurrence: CN)
  Receive Date: 20180704
  Receipt Date: 20180824
  Transmission Date: 20181010
  Serious: Yes (Death, Hospitalization, Other)
  Sender: FDA-Public Use
  Company Number: CN-ASTRAZENECA-2018SE83598

PATIENT
  Age: 41 Year
  Sex: Male
  Weight: 65 kg

DRUGS (12)
  1. TARCEVA [Concomitant]
     Active Substance: ERLOTINIB HYDROCHLORIDE
     Indication: LUNG NEOPLASM MALIGNANT
     Route: 065
  2. BIBW2992 [Concomitant]
     Indication: LUNG NEOPLASM MALIGNANT
     Route: 065
  3. ETOPOSIDE. [Concomitant]
     Active Substance: ETOPOSIDE
     Indication: CHEMOTHERAPY
     Route: 041
     Dates: start: 20170302, end: 20170306
  4. CIS?PLATINUM [Concomitant]
     Active Substance: CISPLATIN
     Indication: CHEMOTHERAPY
     Route: 065
     Dates: start: 20170302, end: 20170306
  5. IRESSA [Suspect]
     Active Substance: GEFITINIB
     Indication: LUNG ADENOCARCINOMA
     Route: 048
     Dates: start: 20140812, end: 201510
  6. TAGRISSO [Suspect]
     Active Substance: OSIMERTINIB
     Indication: LUNG NEOPLASM MALIGNANT
     Route: 048
  7. XL184 [Concomitant]
     Active Substance: CABOZANTINIB
     Indication: LUNG NEOPLASM MALIGNANT
     Route: 065
  8. CIS?PLATINUM [Concomitant]
     Active Substance: CISPLATIN
     Indication: CHEMOTHERAPY
     Route: 065
     Dates: start: 20140814
  9. CRIZOTINIB [Concomitant]
     Active Substance: CRIZOTINIB
     Indication: LUNG NEOPLASM MALIGNANT
     Route: 048
  10. NEXAVAR [Concomitant]
     Active Substance: SORAFENIB
     Indication: LUNG NEOPLASM MALIGNANT
     Route: 065
  11. CIS?PLATINUM [Concomitant]
     Active Substance: CISPLATIN
     Indication: LUNG NEOPLASM MALIGNANT
     Route: 065
     Dates: start: 20140814
  12. CIS?PLATINUM [Concomitant]
     Active Substance: CISPLATIN
     Indication: LUNG NEOPLASM MALIGNANT
     Route: 065
     Dates: start: 20170302, end: 20170306

REACTIONS (3)
  - Malignant transformation [Not Recovered/Not Resolved]
  - Intentional product use issue [Unknown]
  - Drug resistance [Unknown]
